FAERS Safety Report 4293781-1 (Version None)
Quarter: 2004Q1

REPORT INFORMATION
  Report Type: 
  Country: None (occurrence: None)
  Receive Date: 20040210
  Receipt Date: 20040128
  Transmission Date: 20041129
  Serious: Yes (Life-Threatening, Hospitalization)
  Sender: FDA-Public Use
  Company Number: 2003123000

PATIENT
  Age: 75 Year
  Sex: Male
  Weight: 92 kg

DRUGS (6)
  1. VIAGRA [Suspect]
     Indication: ERECTILE DYSFUNCTION
     Dosage: 50 MG (PRN), ORAL
     Route: 048
     Dates: start: 20031201
  2. ACETYLSALICYLIC ACID SRT [Concomitant]
  3. BENDROFLUMETHIAZIDE (BENDROFLUMETHIAZIDE) [Concomitant]
  4. LISINOPRIL [Concomitant]
  5. METFORMIN HCL [Concomitant]
  6. INSULIN ASPART (INSULIN ASPART) [Concomitant]

REACTIONS (1)
  - ANAPHYLACTIC SHOCK [None]
